FAERS Safety Report 24403767 (Version 1)
Quarter: 2024Q4

REPORT INFORMATION
  Report Type: Spontaneous
  Country: GB (occurrence: GB)
  Receive Date: 20241007
  Receipt Date: 20241007
  Transmission Date: 20250115
  Serious: Yes (Other)
  Sender: TEVA
  Company Number: None

PATIENT
  Age: 81 Year
  Sex: Female
  Weight: 75 kg

DRUGS (9)
  1. LORATADINE [Suspect]
     Active Substance: LORATADINE
     Dosage: 10 MG DAILY, DURATION: 81 DAYS
     Route: 048
     Dates: start: 20240625, end: 20240913
  2. AMITRIPTYLINE [Concomitant]
     Active Substance: AMITRIPTYLINE
     Dosage: AT NIGHT, 50 MG DAILY
     Route: 048
     Dates: start: 20240625
  3. FLUTICASONE FUROATE [Concomitant]
     Active Substance: FLUTICASONE FUROATE
     Dosage: EACH NOSTRIL
     Route: 045
     Dates: start: 20240819
  4. PERINDOPRIL ERBUMINE [Suspect]
     Active Substance: PERINDOPRIL ERBUMINE
     Dosage: DURATION: 81 DAYS
     Route: 048
     Dates: start: 20240625, end: 20240913
  5. NITRAZEPAM [Suspect]
     Active Substance: NITRAZEPAM
     Dosage: AT BEDTIME,5 MG DAILY, DURATION: 81 DAYS
     Route: 048
     Dates: start: 20240625, end: 20240913
  6. BENDROFLUMETHIAZIDE [Concomitant]
     Active Substance: BENDROFLUMETHIAZIDE
     Dosage: ONE TO BE TAKEN.....
     Route: 048
     Dates: start: 20240625
  7. ACETAMINOPHEN [Concomitant]
     Active Substance: ACETAMINOPHEN
     Dosage: ONE TO TWO
     Route: 048
  8. CARBOCYSTEINE [Concomitant]
     Active Substance: CARBOCYSTEINE
     Dosage: 1500 MG DAILY
     Route: 048
     Dates: start: 20240913
  9. COTRIMOXAZOLE [Concomitant]
     Active Substance: SULFAMETHOXAZOLE\TRIMETHOPRIM
     Dosage: TAKE ONE E.....
     Route: 048
     Dates: start: 20240913

REACTIONS (1)
  - Hallucination [Recovered/Resolved]

NARRATIVE: CASE EVENT DATE: 20240913
